FAERS Safety Report 7392246-8 (Version None)
Quarter: 2011Q2

REPORT INFORMATION
  Report Type: 
  Country: None (occurrence: None)
  Receive Date: 20110404
  Receipt Date: 20110324
  Transmission Date: 20111010
  Serious: Yes (Other)
  Sender: FDA-Public Use
  Company Number: FR-MERCK-1103FRA00170

PATIENT
  Age: 83 Year
  Sex: Male
  Weight: 84 kg

DRUGS (3)
  1. REPAGLINIDE [Concomitant]
     Route: 048
     Dates: start: 20100902, end: 20101126
  2. JANUMET [Suspect]
     Indication: TYPE 2 DIABETES MELLITUS
     Route: 048
     Dates: start: 20100528
  3. REPAGLINIDE [Concomitant]
     Indication: TYPE 2 DIABETES MELLITUS
     Route: 048
     Dates: start: 20100528, end: 20101215

REACTIONS (1)
  - COLON CANCER RECURRENT [None]
